FAERS Safety Report 8906816 (Version 1)
Quarter: 2012Q4

REPORT INFORMATION
  Report Type: 
  Country: US (occurrence: US)
  Receive Date: 20121114
  Receipt Date: 20121114
  Transmission Date: 20130627
  Serious: Yes (Hospitalization, Other)
  Sender: FDA-Public Use
  Company Number: US-ACTELION-A-NJ2012-73899

PATIENT
  Age: 9 Year
  Sex: Female
  Weight: 92 kg

DRUGS (14)
  1. TRACLEER [Suspect]
     Indication: PULMONARY ARTERIAL HYPERTENSION
     Dosage: 62.5 mg, bid
     Route: 048
  2. SILDENAFIL [Concomitant]
  3. ALBUTEROL [Concomitant]
  4. AMLODIPINE [Concomitant]
  5. CHLORAL HYDRATE [Concomitant]
  6. CHLORHEXIDINE [Concomitant]
  7. PRECEDEX [Concomitant]
  8. LACTOBACILLUS [Concomitant]
  9. ATIVAN [Concomitant]
  10. METHADONE [Concomitant]
  11. MELATONIN [Concomitant]
  12. NYSTATIN [Concomitant]
  13. PHENOBARBITAL [Concomitant]
  14. VERSED [Concomitant]

REACTIONS (2)
  - Gastric bypass [Unknown]
  - Respiratory distress [Not Recovered/Not Resolved]
